FAERS Safety Report 7569408-X (Version None)
Quarter: 2011Q2

REPORT INFORMATION
  Report Type: 
  Country: None (occurrence: None)
  Receive Date: 20110623
  Receipt Date: 20110609
  Transmission Date: 20111010
  Serious: Yes (Other)
  Sender: FDA-Public Use
  Company Number: GB-GENENTECH-320428

PATIENT
  Sex: Female

DRUGS (2)
  1. LUCENTIS [Suspect]
     Indication: PRODUCT USED FOR UNKNOWN INDICATION
     Dosage: 0.05 MG, UNKNOWN
     Route: 031
     Dates: start: 20081030
  2. LUCENTIS [Suspect]
     Dosage: 0.05 MG, UNKNOWN
     Route: 031
     Dates: start: 20090115

REACTIONS (3)
  - MALAISE [None]
  - AORTIC STENOSIS [None]
  - FALL [None]
